FAERS Safety Report 9855192 (Version 1)
Quarter: 2013Q4

REPORT INFORMATION
  Report Type: Spontaneous
  Country: US (occurrence: None)
  Receive Date: 20131226
  Receipt Date: 20131226
  Transmission Date: 20140711
  Serious: Yes (Other)
  Sender: FDA-Public Use
  Company Number: PHEH2013US015874

PATIENT
  Sex: Male

DRUGS (1)
  1. GILENYA ( FINGOLIMOD) CAPSULE, 0.5 MG [Suspect]
     Route: 048

REACTIONS (3)
  - Pneumonia [None]
  - Multiple sclerosis relapse [None]
  - Malaise [None]
